FAERS Safety Report 16568758 (Version 1)
Quarter: 2019Q3

REPORT INFORMATION
  Report Type: Spontaneous
  Country: DK (occurrence: DK)
  Receive Date: 20190713
  Receipt Date: 20190713
  Transmission Date: 20191004
  Serious: Yes (Hospitalization)
  Sender: FDA-Public Use
  Company Number: DK-TEVA-2019-DK-1076663

PATIENT
  Age: 39 Year
  Sex: Male

DRUGS (8)
  1. DOXORUBICIN ^TEVA^ [Suspect]
     Active Substance: DOXORUBICIN HYDROCHLORIDE
     Indication: DIFFUSE LARGE B-CELL LYMPHOMA STAGE IV
     Dosage: STYRKE: 2 MG/ML.
     Dates: start: 20170710, end: 20170928
  2. ONCOVIN [Concomitant]
     Active Substance: VINCRISTINE SULFATE
     Indication: DIFFUSE LARGE B-CELL LYMPHOMA STAGE IV
     Dosage: STYRKE: 1 MG/ML.
     Route: 042
     Dates: start: 20170710
  3. METHADONE [Concomitant]
     Active Substance: METHADONE HYDROCHLORIDE
     Indication: SUBSTANCE ABUSE
     Dosage: STYRKE: 5 OG 20 MG.?DAGLIG DOSIS:  90 MG.
     Route: 048
  4. PREDNISOLONE. [Concomitant]
     Active Substance: PREDNISOLONE
     Indication: DIFFUSE LARGE B-CELL LYMPHOMA STAGE IV
     Dosage: STYRKE: 50 MG.
     Route: 048
     Dates: start: 20170710, end: 20170928
  5. VELBE [Concomitant]
     Active Substance: VINBLASTINE SULFATE
     Indication: DIFFUSE LARGE B-CELL LYMPHOMA STAGE IV
     Dosage: STYRKE: 10 MG.
     Route: 042
     Dates: start: 2017
  6. MABTHERA [Concomitant]
     Active Substance: RITUXIMAB
     Indication: DIFFUSE LARGE B-CELL LYMPHOMA STAGE IV
     Route: 042
     Dates: start: 20170710, end: 20170928
  7. SENDOXAN [Concomitant]
     Active Substance: CYCLOPHOSPHAMIDE
     Indication: DIFFUSE LARGE B-CELL LYMPHOMA STAGE IV
     Route: 042
     Dates: start: 20170710, end: 20170928
  8. ETOPOSID ^FRESENIUS KABI^ [Concomitant]
     Indication: DIFFUSE LARGE B-CELL LYMPHOMA STAGE IV
     Dosage: STYRKE: 20 MG/ML.
     Route: 042
     Dates: start: 20170710, end: 20170928

REACTIONS (7)
  - Fluid retention [Recovered/Resolved]
  - Malaise [Recovered/Resolved]
  - Ejection fraction decreased [Unknown]
  - Cardiac failure [Unknown]
  - Oedema peripheral [Recovered/Resolved]
  - Scrotal oedema [Recovered/Resolved]
  - Dyspnoea [Recovered/Resolved]

NARRATIVE: CASE EVENT DATE: 2018
